FAERS Safety Report 14713273 (Version 3)
Quarter: 2018Q3

REPORT INFORMATION
  Report Type: Report from Study
  Country: GB (occurrence: GB)
  Receive Date: 20180404
  Receipt Date: 20180706
  Transmission Date: 20181010
  Serious: Yes (Hospitalization, Other)
  Sender: FDA-Public Use
  Company Number: GB-ROCHE-2095887

PATIENT
  Sex: Female

DRUGS (31)
  1. ROACTEMRA [Suspect]
     Active Substance: TOCILIZUMAB
     Indication: RHEUMATOID ARTHRITIS
     Route: 058
     Dates: start: 20180220
  2. PEPPERMINT. [Concomitant]
     Active Substance: PEPPERMINT
     Dosage: 6 ALLOWED SUPPLY: (600) ML 5?1OMLS FOUR TIMES PENSE IN 2 300ML BOTTLES
     Route: 065
  3. PREDNISOLONE. [Concomitant]
     Active Substance: PREDNISOLONE
     Dosage: GASTRO?RESISTANT TABLETS
     Route: 065
  4. IBUPROFEN. [Concomitant]
     Active Substance: IBUPROFEN
     Indication: PAIN
     Dosage: 05/04/2018 ISSUE 4 LBUPROFEN 400MG TABLETS SUPPLY: (84) TABLET TAKE 1 TABLET UP TO THREE TIMES DAILY
     Route: 065
     Dates: start: 20180405
  5. PANTOPRAZOLE [Concomitant]
     Active Substance: PANTOPRAZOLE
     Dosage: 05/04/2018 ISSUE 1 PANTOPRAZOLE 40 MG GASTRO?RESISTANT TABLETS SUPPLY: (56) TABLET TAKE ONE DAILY?12
     Route: 065
     Dates: start: 20180405
  6. HYDROXOCOBALAMIN [Concomitant]
     Active Substance: HYDROXOCOBALAMIN
     Dosage: 14102/2018 HYDROXOCOBALAMIN 1 MG/LML SOLUTION FOR INJECTION AMPOULES SUPPLY: (5) AMPOULE 1 INJECTION
     Route: 065
     Dates: start: 20180214
  7. PANTOPRAZOLE [Concomitant]
     Active Substance: PANTOPRAZOLE
     Dosage: 05/04/2018 ISSUE 1 PANTOPRAZOLE 40 MG GASTRO?RESISTANT TABLETS SUPPLY: (56) TABLET TAKE ONE DAILY?12
     Route: 065
     Dates: start: 20180212
  8. RANITIDINE. [Concomitant]
     Active Substance: RANITIDINE
     Dosage: 05/04/2018 ISSUE 5 RANITIDINE 300MG TABLETS SUPPLY: (60) TABLET ONE DAILY
     Route: 065
     Dates: start: 20180405
  9. CO?DYDRAMOL [Concomitant]
     Active Substance: ACETAMINOPHEN\DIHYDROCODEINE
     Dosage: 05/04/2018 CO?DYDRAMOL 1 MG/SOOMG TABLETS SUPPLY: (100) TABLET 1 OR 2 TABLETS FOUR TIMES A DAY?12/02
     Route: 065
     Dates: start: 20180212
  10. CO?DYDRAMOL [Concomitant]
     Active Substance: ACETAMINOPHEN\DIHYDROCODEINE
     Dosage: 05/04/2018 CO?DYDRAMOL 1 MG/SOOMG TABLETS SUPPLY: (100) TABLET 1 OR 2 TABLETS FOUR TIMES A DAY?12/02
     Route: 065
     Dates: start: 20180129
  11. ETRIVEX [Concomitant]
     Active Substance: CLOBETASOL PROPIONATE
     Dosage: 12/02/2018 ETRIVEX 500 MICROGRAMS/G SHAMPOO (GALDERMA (UK) LTD) SUPPLY: (250) ML USE DAILY FOR 1 MON
     Route: 065
     Dates: start: 20180129
  12. LIDOCAINE. [Concomitant]
     Active Substance: LIDOCAINE
     Dosage: LIDOCAINE 5% MEDICATED PLASTERS LAST ISSUED: 19/07/2017 ISSUED: 1 MAXIMUM 6 ALLOWED SUPPLY: (30) PLA
     Route: 065
     Dates: start: 20170719
  13. RIZATRIPTAN. [Concomitant]
     Active Substance: RIZATRIPTAN
     Dosage: 05/04/2018 ISSUE 4 RIZATRIPTAN 5MG TABLETS SUPPLY: (6) TABLET 1 TABLET AT ONSET OF MIGRAINE, REPEAT
     Route: 065
     Dates: start: 20180212
  14. GAVISCON (ALGINIC ACID) [Concomitant]
     Active Substance: ALGINIC ACID
     Route: 048
  15. ROACTEMRA [Suspect]
     Active Substance: TOCILIZUMAB
     Indication: RHEUMATOID ARTHRITIS
     Route: 042
     Dates: start: 20170727
  16. PREDNISOLONE. [Concomitant]
     Active Substance: PREDNISOLONE
     Indication: RHEUMATOID ARTHRITIS
     Dosage: GASTRO?RESISTANT TABLETS
     Route: 065
     Dates: start: 20180405
  17. LOPERAMIDE [Concomitant]
     Active Substance: LOPERAMIDE
     Indication: DIARRHOEA
     Dosage: 12/02/2018 LOPERAMIDE 2MG CAPSULES SUPPLY: (60) CAPSULE ONE AS NEEDED FOR DIARRHOEA
     Route: 065
     Dates: start: 20180212
  18. SULFASALAZINE. [Concomitant]
     Active Substance: SULFASALAZINE
     Route: 048
  19. GABAPENTIN. [Concomitant]
     Active Substance: GABAPENTIN
     Dosage: 05/04/2018 ISSUE 6 GABAPENTIN 300MG CAPSULES SUPPLY: (56) CAPSULE ONE UP TO THREE TIMES A DAY FOR NE
     Route: 065
     Dates: start: 20180212
  20. RIZATRIPTAN. [Concomitant]
     Active Substance: RIZATRIPTAN
     Indication: MIGRAINE
     Dosage: 05/04/2018 ISSUE 4 RIZATRIPTAN 5MG TABLETS SUPPLY: (6) TABLET 1 TABLET AT ONSET OF MIGRAINE, REPEAT
     Route: 065
     Dates: start: 20180405
  21. PROPRANOLOL [Concomitant]
     Active Substance: PROPRANOLOL HYDROCHLORIDE
     Dosage: 05104/2018 ISSUE 1 PROPRANOLOL 160 MG MODIFIED?RELEASE CAPSULES SUPPLY: (56) CAPSULE 1 CAPSULE ONCE
     Route: 065
     Dates: start: 20180405
  22. PROPRANOLOL [Concomitant]
     Active Substance: PROPRANOLOL HYDROCHLORIDE
     Dosage: 05104/2018 ISSUE 1 PROPRANOLOL 160 MG MODIFIED?RELEASE CAPSULES SUPPLY: (56) CAPSULE 1 CAPSULE ONCE
     Route: 065
     Dates: start: 20180129
  23. BIOTIN [Concomitant]
     Active Substance: BIOTIN
     Indication: PAIN
     Route: 065
  24. CO?DYDRAMOL [Concomitant]
     Active Substance: ACETAMINOPHEN\DIHYDROCODEINE
     Dosage: 05/04/2018 CO?DYDRAMOL 1 MG/SOOMG TABLETS SUPPLY: (100) TABLET 1 OR 2 TABLETS FOUR TIMES A DAY?12/02
     Route: 065
     Dates: start: 20180405
  25. ALENDRONIC ACID [Concomitant]
     Active Substance: ALENDRONIC ACID
     Dosage: 70MG TABLETS LAST ISSUED: 27/03/2017 MAXIMUM 6 ALLOWED SUPPLY: (8) TABLET 1 TABLET ONCE A WEEK
     Route: 065
     Dates: start: 20170327
  26. GABAPENTIN. [Concomitant]
     Active Substance: GABAPENTIN
     Indication: NEURALGIA
     Dosage: 05/04/2018 ISSUE 6 GABAPENTIN 300MG CAPSULES SUPPLY: (56) CAPSULE ONE UP TO THREE TIMES A DAY FOR NE
     Route: 065
     Dates: start: 20180405
  27. IBUPROFEN. [Concomitant]
     Active Substance: IBUPROFEN
     Dosage: 05/04/2018 ISSUE 4 LBUPROFEN 400MG TABLETS SUPPLY: (84) TABLET TAKE 1 TABLET UP TO THREE TIMES DAILY
     Route: 065
     Dates: start: 20180212
  28. RANITIDINE. [Concomitant]
     Active Substance: RANITIDINE
     Dosage: 05/04/2018 ISSUE 5 RANITIDINE 300MG TABLETS SUPPLY: (60) TABLET ONE DAILY
     Route: 065
     Dates: start: 20180129
  29. DESOGESTREL [Concomitant]
     Active Substance: DESOGESTREL
     Dosage: 12/02/2018 DESOGESTREL 7SMICROGRAM TABLETS SUPPLY: (84) TABLET 1 TABLET ONCE A DAY
     Route: 065
     Dates: start: 20180212
  30. ETRIVEX [Concomitant]
     Active Substance: CLOBETASOL PROPIONATE
     Dosage: 12/02/2018 ETRIVEX 500 MICROGRAMS/G SHAMPOO (GALDERMA (UK) LTD) SUPPLY: (250) ML USE DAILY FOR 1 MON
     Route: 065
     Dates: start: 20180212
  31. NATECAL D3 [Concomitant]
     Active Substance: CALCIUM CARBONATE\CHOLECALCIFEROL
     Dosage: 600MG/400 E TABLETS LAST ISSUED: 27/03/2017 ISSUED: 3 MAXIMUM 6 ALLOWED SUPPLY: (112
     Route: 065
     Dates: start: 20170327

REACTIONS (6)
  - Urinary tract infection [Recovered/Resolved]
  - Urinary tract infection [Unknown]
  - Menstrual disorder [Unknown]
  - Abdominal pain [Unknown]
  - Menorrhagia [Unknown]
  - Dysmenorrhoea [Not Recovered/Not Resolved]

NARRATIVE: CASE EVENT DATE: 20171212
